FAERS Safety Report 17651165 (Version 6)
Quarter: 2021Q1

REPORT INFORMATION
  Report Type: Spontaneous
  Country: FR (occurrence: FR)
  Receive Date: 20200409
  Receipt Date: 20210301
  Transmission Date: 20210419
  Serious: Yes (Hospitalization, Other)
  Sender: FDA-Public Use
  Company Number: FR-AUROBINDO-AUR-APL-2020-016850

PATIENT
  Age: 51 Year
  Sex: Male
  Weight: 75.5 kg

DRUGS (6)
  1. LINEZOLID. [Suspect]
     Active Substance: LINEZOLID
     Indication: LUNG ADENOCARCINOMA
     Dosage: 1200 MILLIGRAM, ONCE A DAY
     Route: 048
  2. ATEZOLIZUMAB. [Concomitant]
     Active Substance: ATEZOLIZUMAB
     Indication: IMMUNOCHEMOTHERAPY
  3. ATEZOLIZUMAB. [Concomitant]
     Active Substance: ATEZOLIZUMAB
     Indication: LUNG ADENOCARCINOMA
     Dosage: UNK
     Route: 065
  4. LINEZOLID. [Suspect]
     Active Substance: LINEZOLID
     Indication: ENTEROCOCCAL INFECTION
     Dosage: 600 MILLIGRAM, TWO TIMES A DAY (1200 MILLIGRAM, ONCE A DAY)
     Route: 048
  5. CISPLATINE [Suspect]
     Active Substance: CISPLATIN
     Indication: LUNG ADENOCARCINOMA
     Dosage: UNK
     Route: 065
  6. VINORELBINE [Suspect]
     Active Substance: VINORELBINE TARTRATE
     Indication: LUNG ADENOCARCINOMA
     Dosage: UNK
     Route: 065

REACTIONS (9)
  - Thrombocytopenia [Recovered/Resolved]
  - Protein total abnormal [Unknown]
  - Pyrexia [Unknown]
  - Dysuria [Unknown]
  - Generalised tonic-clonic seizure [Recovering/Resolving]
  - Status epilepticus [Recovered/Resolved]
  - Leukopenia [Recovered/Resolved]
  - Rash maculo-papular [Recovered/Resolved]
  - CSF white blood cell count positive [Recovered/Resolved]
